FAERS Safety Report 16787864 (Version 1)
Quarter: 2019Q3

REPORT INFORMATION
  Report Type: Report from Study
  Country: FR (occurrence: FR)
  Receive Date: 20190909
  Receipt Date: 20190909
  Transmission Date: 20191005
  Serious: Yes (Other)
  Sender: FDA-Public Use
  Company Number: FR-TAKEDA-2019TUS051322

PATIENT
  Sex: Female
  Weight: 52 kg

DRUGS (1)
  1. IXAZOMIB [Suspect]
     Active Substance: IXAZOMIB
     Indication: PLASMA CELL MYELOMA
     Dosage: UNK
     Route: 065
     Dates: start: 20170926

REACTIONS (7)
  - Myalgia [Unknown]
  - Thrombocytopenia [Unknown]
  - Diarrhoea [Recovering/Resolving]
  - Nausea [Unknown]
  - Anaemia [Unknown]
  - Neutropenia [Unknown]
  - Cough [Unknown]

NARRATIVE: CASE EVENT DATE: 20171201
